FAERS Safety Report 4836671-5 (Version None)
Quarter: 2005Q4

REPORT INFORMATION
  Report Type: 
  Country: None (occurrence: None)
  Receive Date: 20051121
  Receipt Date: 20051110
  Transmission Date: 20060501
  Serious: Yes (Hospitalization, Other)
  Sender: FDA-Public Use
  Company Number: 2005-11-0639

PATIENT
  Age: 50 Year
  Sex: Female

DRUGS (2)
  1. PEG-INTRON (PEGINTERFERON ALFA-2B) INJECTABLE POWDER [Suspect]
     Indication: HEPATITIS C
     Dosage: 80 MCG QW SUBCUTANEOUS
     Route: 058
     Dates: start: 20050701, end: 20051104
  2. REBETOL [Suspect]
     Indication: HEPATITIS C
     Dosage: 600 MG ORAL
     Route: 048
     Dates: start: 20050701, end: 20051104

REACTIONS (1)
  - SUBARACHNOID HAEMORRHAGE [None]
